FAERS Safety Report 14023204 (Version 1)
Quarter: 2017Q3

REPORT INFORMATION
  Report Type: Report from Study
  Country: US (occurrence: US)
  Receive Date: 20170929
  Receipt Date: 20170929
  Transmission Date: 20171128
  Serious: No
  Sender: FDA-Public Use
  Company Number: PHHY2017US140351

PATIENT
  Age: 48 Year
  Sex: Female

DRUGS (1)
  1. GILENYA [Suspect]
     Active Substance: FINGOLIMOD HYDROCHLORIDE
     Indication: MULTIPLE SCLEROSIS
     Dosage: UNK
     Route: 065

REACTIONS (8)
  - Lentigo [Unknown]
  - Haemangioma [Unknown]
  - Seborrhoeic dermatitis [Unknown]
  - Alanine aminotransferase increased [Unknown]
  - Acne [Unknown]
  - Fibrous histiocytoma [Unknown]
  - Seborrhoeic keratosis [Unknown]
  - Melanocytic naevus [Unknown]

NARRATIVE: CASE EVENT DATE: 20170327
